FAERS Safety Report 25386312 (Version 1)
Quarter: 2025Q2

REPORT INFORMATION
  Report Type: Spontaneous
  Country: US (occurrence: None)
  Receive Date: 20250602
  Receipt Date: 20250602
  Transmission Date: 20250717
  Serious: Yes (Hospitalization, Disabling, Other)
  Sender: FDA-CTU
  Company Number: None

PATIENT
  Age: 39 Year
  Sex: Female
  Weight: 56.25 kg

DRUGS (2)
  1. EFFEXOR XR [Suspect]
     Active Substance: VENLAFAXINE HYDROCHLORIDE
     Indication: Depression
     Dates: start: 20011215, end: 20160306
  2. WELLBUTRIN XL [Suspect]
     Active Substance: BUPROPION HYDROCHLORIDE
     Indication: Depression
     Dates: start: 20011215, end: 20160610

REACTIONS (11)
  - Off label use [None]
  - Depression [None]
  - Sexual dysfunction [None]
  - Anorgasmia [None]
  - Gastrointestinal disorder [None]
  - Vomiting [None]
  - Anxiety [None]
  - Depression [None]
  - Therapy interrupted [None]
  - Withdrawal syndrome [None]
  - Nodular vasculitis [None]

NARRATIVE: CASE EVENT DATE: 20160315
